FAERS Safety Report 15584201 (Version 3)
Quarter: 2019Q1

REPORT INFORMATION
  Report Type: Report from Study
  Country: ES (occurrence: ES)
  Receive Date: 20181105
  Receipt Date: 20190227
  Transmission Date: 20190417
  Serious: Yes (Other)
  Sender: FDA-Public Use
  Company Number: ES-ROCHE-1915579

PATIENT
  Age: 58 Year
  Sex: Female
  Weight: 70 kg

DRUGS (3)
  1. VEMURAFENIB. [Suspect]
     Active Substance: VEMURAFENIB
     Indication: METASTATIC MALIGNANT MELANOMA
     Dosage: DATE OF LAST DOSE PRIOR TO THE FIRST EPISODE OF BILATERAL UVEITIS ON 24/JAN/2017?DATE OF LAST DOSE P
     Route: 048
     Dates: start: 20160614
  2. CYCLOPLEGIC [Concomitant]
     Dosage: EYE DROPS
     Route: 065
     Dates: start: 20170328, end: 20170330
  3. COBIMETINIB. [Suspect]
     Active Substance: COBIMETINIB
     Indication: METASTATIC MALIGNANT MELANOMA
     Dosage: DATE OF LAST DOSE OF COBIMETINIB PRIOR TO THE ONSET OF FIRST EPISODE OF BILATERAL UVEITIS: 24/JAN/20
     Route: 048
     Dates: start: 20160614

REACTIONS (1)
  - Uveitis [Recovered/Resolved]

NARRATIVE: CASE EVENT DATE: 20170125
